FAERS Safety Report 9038286 (Version 1)
Quarter: 2013Q1

REPORT INFORMATION
  Report Type: Spontaneous
  Country: CH (occurrence: CH)
  Receive Date: 20130129
  Receipt Date: 20130129
  Transmission Date: 20140127
  Serious: Yes (Hospitalization, Other)
  Sender: FDA-Public Use
  Company Number: CH-009507513-1301CHE011765

PATIENT
  Age: 50 Year
  Sex: Female

DRUGS (8)
  1. REMERON [Suspect]
     Dosage: 30 MG; 60 UNITS ONCE
     Route: 048
     Dates: start: 20121222, end: 20121222
  2. TRIMIPRAMINE [Suspect]
     Dosage: 25 MG; 50 UNITS, ONCE
     Route: 048
     Dates: start: 20121222, end: 20121222
  3. ESCITALOPRAM [Suspect]
     Dosage: 10 DF, ONCE
     Route: 048
     Dates: start: 20121222, end: 20121222
  4. ALPRAZOLAM [Suspect]
     Dosage: UNK, ONCE
     Route: 048
     Dates: start: 20121222, end: 20121222
  5. TROSPIUM CHLORIDE [Suspect]
     Dosage: 40 MG, ONCE
     Route: 065
     Dates: start: 20121222, end: 20121222
  6. TRAMADOL HYDROCHLORIDE [Suspect]
     Dosage: UNK, ONCE
     Route: 065
     Dates: start: 20121222, end: 20121222
  7. ACETAMINOPHEN [Suspect]
     Dosage: UNK, ONCE
     Route: 065
     Dates: start: 20121222, end: 20121222
  8. ESOMEPRAZOLE [Suspect]
     Dosage: UNK, ONCE
     Route: 065
     Dates: start: 20121222, end: 20121222

REACTIONS (4)
  - Coma [Recovered/Resolved]
  - Suicide attempt [Recovered/Resolved]
  - Electrocardiogram QT prolonged [Recovered/Resolved]
  - Overdose [Recovered/Resolved]
